FAERS Safety Report 12275898 (Version 4)
Quarter: 2016Q2

REPORT INFORMATION
  Report Type: Report from Study
  Country: US (occurrence: US)
  Receive Date: 20160418
  Receipt Date: 20160526
  Transmission Date: 20160815
  Serious: Yes (Hospitalization, Other)
  Sender: FDA-Public Use
  Company Number: US-GILEAD-2016-0205712

PATIENT
  Age: 75 Year
  Sex: Female
  Weight: 56 kg

DRUGS (4)
  1. REMODULIN [Suspect]
     Active Substance: TREPROSTINIL
     Indication: PULMONARY ARTERIAL HYPERTENSION
     Dosage: 0.033 UG/KG, Q1MINUTE
     Route: 058
     Dates: start: 20150904
  2. AMBRISENTAN [Suspect]
     Active Substance: AMBRISENTAN
     Indication: PRODUCT USED FOR UNKNOWN INDICATION
     Dosage: 5 MG, QD
     Route: 065
     Dates: end: 201604
  3. COUMADIN [Concomitant]
     Active Substance: WARFARIN SODIUM
  4. ADCIRCA [Concomitant]
     Active Substance: TADALAFIL

REACTIONS (7)
  - Pulmonary hypertension [Not Recovered/Not Resolved]
  - Infusion site pain [Unknown]
  - Fluid overload [Recovered/Resolved]
  - Blood pressure decreased [Unknown]
  - Infusion site haemorrhage [Recovered/Resolved]
  - Infusion site pruritus [Unknown]
  - Clostridium difficile infection [Not Recovered/Not Resolved]
